FAERS Safety Report 7641604-2 (Version None)
Quarter: 2011Q3

REPORT INFORMATION
  Report Type: 
  Country: None (occurrence: None)
  Receive Date: 20110728
  Receipt Date: 20110726
  Transmission Date: 20111222
  Serious: Yes (Life-Threatening, Hospitalization, Other)
  Sender: FDA-Public Use
  Company Number: FR-BAYER-2011-055109

PATIENT
  Age: 37 Year
  Sex: Female
  Weight: 55 kg

DRUGS (1)
  1. MIRENA [Suspect]
     Dosage: 20 ?G, CONT
     Route: 015
     Dates: start: 20100719

REACTIONS (10)
  - AMENORRHOEA [None]
  - COLON INJURY [None]
  - CARDIO-RESPIRATORY ARREST [None]
  - PELVIC PAIN [None]
  - VAGINAL HAEMORRHAGE [None]
  - RUPTURED ECTOPIC PREGNANCY [None]
  - DEVICE DISLOCATION [None]
  - INTRA-ABDOMINAL HAEMATOMA [None]
  - MENSTRUATION IRREGULAR [None]
  - UTERINE PERFORATION [None]
